FAERS Safety Report 7035392-0 (Version None)
Quarter: 2010Q4

REPORT INFORMATION
  Report Type: 
  Country: None (occurrence: None)
  Receive Date: 20101008
  Receipt Date: 20100921
  Transmission Date: 20110411
  Serious: Yes (Other)
  Sender: FDA-Public Use
  Company Number: PHHY2010BR65094

PATIENT
  Age: 56 Year
  Sex: Male

DRUGS (14)
  1. DIOVAN [Suspect]
     Dosage: 160X 1
  2. METFORMIN HCL [Suspect]
     Dosage: 850X2
  3. ENALAPRIL MALEATE [Concomitant]
     Dosage: 20X2
  4. FUROSEMIDE [Concomitant]
     Dosage: 40X1
  5. INDAPAMIDE [Concomitant]
     Dosage: 1 DF
  6. INSULIN (NPH 40 AND 30) [Concomitant]
  7. DIAMICRON MR [Concomitant]
     Dosage: 3 DF
  8. AMLODIPINE [Concomitant]
     Dosage: 5X1
  9. ROSUVASTATIN [Concomitant]
     Dosage: 10X1
  10. ROSUVASTATIN [Concomitant]
     Dosage: 20X1
  11. ROSUVASTATIN [Concomitant]
     Dosage: 40X1
  12. EXFORGE [Suspect]
     Dosage: 320/ 5X1
  13. CLOPIDOGREL [Concomitant]
     Dosage: 75X1
  14. ASPIRIN [Concomitant]
     Dosage: 100X2

REACTIONS (2)
  - ARTERIOSCLEROSIS [None]
  - PERIPHERAL VASCULAR DISORDER [None]
